FAERS Safety Report 5035273-8 (Version None)
Quarter: 2006Q2

REPORT INFORMATION
  Report Type: 
  Country: None (occurrence: None)
  Receive Date: 20060522
  Receipt Date: 20060406
  Transmission Date: 20061013
  Serious: Yes (Other)
  Sender: FDA-Public Use
  Company Number: US-JNJFOC-20060203261

PATIENT
  Age: 45 Year
  Sex: Male
  Weight: 98.8842 kg

DRUGS (2)
  1. RISPERDAL CONSTA [Suspect]
     Indication: SCHIZOPHRENIA
     Dosage: 50 MG, 1 IN 2 WEEK, INTRAVENOUS
     Route: 042
     Dates: start: 20050601
  2. HALDOL DECANOATE (HALOPERIDOL DECANOATE) [Concomitant]

REACTIONS (1)
  - HYPERTENSION [None]
